APPROVED DRUG PRODUCT: CEFOBID
Active Ingredient: CEFOPERAZONE SODIUM
Strength: EQ 2GM BASE/VIAL
Dosage Form/Route: INJECTABLE;INJECTION
Application: A063333 | Product #002
Applicant: PFIZER INC
Approved: Mar 31, 1995 | RLD: No | RS: No | Type: DISCN